FAERS Safety Report 19520970 (Version 1)
Quarter: 2021Q3

REPORT INFORMATION
  Report Type: Spontaneous
  Country: US (occurrence: US)
  Receive Date: 20210712
  Receipt Date: 20210712
  Transmission Date: 20211014
  Serious: No
  Sender: FDA-Public Use
  Company Number: US-ASTRAZENECA-2021A558204

PATIENT
  Sex: Female
  Weight: 61.2 kg

DRUGS (1)
  1. FARXIGA [Suspect]
     Active Substance: DAPAGLIFLOZIN PROPANEDIOL
     Indication: BLOOD GLUCOSE ABNORMAL
     Dosage: DAILY
     Route: 048
     Dates: end: 2019

REACTIONS (6)
  - Abdominal discomfort [Unknown]
  - Pollakiuria [Unknown]
  - Urinary tract infection fungal [Unknown]
  - Fungal infection [Unknown]
  - Contusion [Unknown]
  - Blood glucose increased [Unknown]

NARRATIVE: CASE EVENT DATE: 2019
